FAERS Safety Report 10496450 (Version 2)
Quarter: 2014Q4

REPORT INFORMATION
  Report Type: Spontaneous
  Country: IT (occurrence: IT)
  Receive Date: 20141004
  Receipt Date: 20141009
  Transmission Date: 20150528
  Serious: Yes (Other)
  Sender: FDA-Public Use
  Company Number: IT-ACCORD-026249

PATIENT
  Age: 68 Year
  Sex: Male

DRUGS (2)
  1. PANITUMUMAB [Suspect]
     Active Substance: PANITUMUMAB
     Indication: COLON CANCER
     Dosage: 500 MG CYCLICAL
     Route: 042
     Dates: start: 20140728, end: 20140728
  2. FLUOROURACIL. [Suspect]
     Active Substance: FLUOROURACIL
     Indication: COLON CANCER
     Route: 042
     Dates: start: 20140714, end: 20140728

REACTIONS (2)
  - Erythema [Recovered/Resolved]
  - Q fever [Recovered/Resolved]

NARRATIVE: CASE EVENT DATE: 20140808
